FAERS Safety Report 9710643 (Version 1)
Quarter: 2013Q4

REPORT INFORMATION
  Report Type: Spontaneous
  Country: US (occurrence: US)
  Receive Date: 20131126
  Receipt Date: 20131126
  Transmission Date: 20140711
  Serious: No
  Sender: FDA-Public Use
  Company Number: US-BRISTOL-MYERS SQUIBB COMPANY-19001262

PATIENT
  Age: 52 Year
  Sex: Male

DRUGS (3)
  1. BYDUREON [Suspect]
     Indication: DIABETES MELLITUS
     Dosage: STARTED:26APR13, LAST DOSE:7JUN13
     Dates: start: 20130531
  2. METFORMIN [Concomitant]
     Dosage: EXTENDED RELEASE
  3. GLIPIZIDE [Concomitant]

REACTIONS (2)
  - Injection site haemorrhage [Recovered/Resolved]
  - Injection site swelling [Not Recovered/Not Resolved]
